FAERS Safety Report 14686634 (Version 2)
Quarter: 2018Q1

REPORT INFORMATION
  Report Type: Spontaneous
  Country: US (occurrence: US)
  Receive Date: 20180327
  Receipt Date: 20180327
  Transmission Date: 20180509
  Serious: Yes (Disabling)
  Sender: FDA-Public Use
  Company Number: US-GE HEALTHCARE LIFE SCIENCES-OSCN-PR-0910S-0454

PATIENT
  Age: 78 Year
  Sex: Female

DRUGS (6)
  1. GADOLINIUM (UNSPECIFIED) [Suspect]
     Active Substance: GADOLINIUM
     Indication: HYPERTENSION
     Dosage: 11 ADMINISTRATIONS
     Route: 042
     Dates: start: 20000920, end: 200506
  2. MULTIHANCE [Suspect]
     Active Substance: GADOBENATE DIMEGLUMINE
     Dosage: 30 ML, SINGLE
     Route: 042
     Dates: start: 20070920, end: 20070920
  3. OMNISCAN [Suspect]
     Active Substance: GADODIAMIDE
     Indication: AORTIC VALVE STENOSIS
     Dosage: 30 ML, SINGLE
     Route: 042
     Dates: start: 20050915, end: 20050915
  4. MULTIHANCE [Suspect]
     Active Substance: GADOBENATE DIMEGLUMINE
     Dosage: 26 ML, SINGLE
     Route: 042
     Dates: start: 20070517, end: 20070517
  5. MULTIHANCE [Suspect]
     Active Substance: GADOBENATE DIMEGLUMINE
     Indication: STENT PLACEMENT
     Dosage: 40 ML, SINGLE
     Route: 042
     Dates: start: 20070208, end: 20070208
  6. GADOLINIUM (UNSPECIFIED) [Suspect]
     Active Substance: GADOLINIUM
     Dosage: UNK UNK, SINGLE
     Route: 065
     Dates: start: 200607, end: 200607

REACTIONS (1)
  - Nephrogenic systemic fibrosis [Not Recovered/Not Resolved]

NARRATIVE: CASE EVENT DATE: 200712
